FAERS Safety Report 16485775 (Version 1)
Quarter: 2019Q2

REPORT INFORMATION
  Report Type: Spontaneous
  Country: US (occurrence: US)
  Receive Date: 20190627
  Receipt Date: 20190627
  Transmission Date: 20190711
  Serious: No
  Sender: FDA-Public Use
  Company Number: US-SA-2019SA174666

PATIENT
  Age: 69 Year
  Sex: Female

DRUGS (2)
  1. PRALUENT [Suspect]
     Active Substance: ALIROCUMAB
     Indication: TYPE IIA HYPERLIPIDAEMIA
     Dosage: 150 MG, QOW
     Route: 058
     Dates: start: 20170201, end: 20190625
  2. PRALUENT [Suspect]
     Active Substance: ALIROCUMAB
     Dosage: 150 MG, QOW
     Route: 058

REACTIONS (3)
  - Low density lipoprotein increased [Recovering/Resolving]
  - Urinary tract infection [Recovering/Resolving]
  - Urinary tract discomfort [Recovering/Resolving]

NARRATIVE: CASE EVENT DATE: 2019
